FAERS Safety Report 5523194-3 (Version None)
Quarter: 2007Q4

REPORT INFORMATION
  Report Type: 
  Country: None (occurrence: None)
  Receive Date: 20071116
  Receipt Date: 20071116
  Transmission Date: 20080405
  Serious: Yes (Life-Threatening, Hospitalization)
  Sender: FDA-Public Use
  Company Number: None

PATIENT
  Age: 42 Year
  Sex: Male
  Weight: 77.1115 kg

DRUGS (1)
  1. AMBIEN [Suspect]
     Indication: INSOMNIA
     Dosage: 10-20MG BEFORE BEDTIME PO
     Route: 048
     Dates: start: 20050701, end: 20060829

REACTIONS (11)
  - ABNORMAL BEHAVIOUR [None]
  - AMNESIA [None]
  - DRUG DEPENDENCE [None]
  - ECONOMIC PROBLEM [None]
  - FACIAL BONES FRACTURE [None]
  - FALL [None]
  - LEGAL PROBLEM [None]
  - LOSS OF EMPLOYMENT [None]
  - PARTNER STRESS [None]
  - SLEEP DISORDER [None]
  - SOMNAMBULISM [None]
